FAERS Safety Report 14775083 (Version 1)
Quarter: 2018Q2

REPORT INFORMATION
  Report Type: Spontaneous
  Country: FR (occurrence: FR)
  Receive Date: 20180418
  Receipt Date: 20180418
  Transmission Date: 20180711
  Serious: Yes (Other)
  Sender: FDA-Public Use
  Company Number: FR-MERCK KGAA-2045949

PATIENT
  Age: 30 Year
  Sex: Female

DRUGS (1)
  1. NOVOTHYROX [Suspect]
     Active Substance: LEVOTHYROXINE SODIUM
     Indication: PRODUCT USED FOR UNKNOWN INDICATION

REACTIONS (22)
  - Abdominal distension [None]
  - Fatigue [None]
  - C-reactive protein increased [None]
  - Economic problem [None]
  - Palpitations [None]
  - Irritability [None]
  - Pain [None]
  - Feeling abnormal [None]
  - Self esteem decreased [None]
  - Musculoskeletal pain [None]
  - Social avoidant behaviour [None]
  - Alanine aminotransferase increased [None]
  - Extrasystoles [None]
  - Somnolence [None]
  - Crying [None]
  - Personal relationship issue [None]
  - Cardiac disorder [None]
  - Loss of personal independence in daily activities [None]
  - Chest pain [None]
  - Insomnia [None]
  - Weight increased [None]
  - Alopecia [None]

NARRATIVE: CASE EVENT DATE: 20170224
